FAERS Safety Report 4869340-6 (Version None)
Quarter: 2005Q4

REPORT INFORMATION
  Report Type: 
  Country: None (occurrence: None)
  Receive Date: 20051228
  Receipt Date: 20051228
  Transmission Date: 20060501
  Serious: Yes (Other)
  Sender: FDA-Public Use
  Company Number: None

PATIENT
  Sex: Male
  Weight: 99.7913 kg

DRUGS (1)
  1. TAXOL [Suspect]
     Indication: ARTERIAL OCCLUSIVE DISEASE
     Dates: start: 20040923

REACTIONS (5)
  - CHEST PAIN [None]
  - HYPERTENSION [None]
  - IMPAIRED WORK ABILITY [None]
  - POST PROCEDURAL COMPLICATION [None]
  - RASH [None]
